FAERS Safety Report 5715210-0 (Version None)
Quarter: 2008Q2

REPORT INFORMATION
  Report Type: 
  Country: None (occurrence: None)
  Receive Date: 20080423
  Receipt Date: 20080414
  Transmission Date: 20081010
  Serious: Yes (Hospitalization, Other)
  Sender: FDA-Public Use
  Company Number: US-PFIZER INC-2005133112

PATIENT
  Sex: Female
  Weight: 59 kg

DRUGS (3)
  1. CELEBREX [Suspect]
     Indication: ARTHRALGIA
     Route: 048
     Dates: start: 20010601, end: 20010601
  2. BEXTRA [Suspect]
     Indication: ARTHRALGIA
     Route: 048
  3. VIOXX [Suspect]
     Route: 048

REACTIONS (10)
  - ARRHYTHMIA [None]
  - ATRIAL FIBRILLATION [None]
  - CARDIAC DISORDER [None]
  - CORONARY ARTERY OCCLUSION [None]
  - DIABETES MELLITUS [None]
  - GASTROOESOPHAGEAL REFLUX DISEASE [None]
  - HAEMORRHAGE [None]
  - RESPIRATORY DISORDER [None]
  - THROMBOSIS [None]
  - VASCULAR INJURY [None]
